FAERS Safety Report 4867938-2 (Version None)
Quarter: 2005Q4

REPORT INFORMATION
  Report Type: 
  Country: None (occurrence: None)
  Receive Date: 20051227
  Receipt Date: 20051216
  Transmission Date: 20060501
  Serious: Yes (Hospitalization)
  Sender: FDA-Public Use
  Company Number: 2005ADE/DICLO-016

PATIENT
  Age: 42 Year
  Sex: Female

DRUGS (3)
  1. DICLORATIO (DICLOFENAC) [Suspect]
     Dosage: 75MG, DAILY
     Dates: start: 20051102, end: 20051109
  2. COXALGAN (NABUMETONE), #3. NAOROXEN (NAPROXEN) [Suspect]
     Dosage: 1000MG, D, O/500MG, D, REC.
     Dates: start: 20051102, end: 20051109
  3. NAPROXEN [Suspect]
     Dosage: 500 MG, D
     Dates: start: 20051102, end: 20051109

REACTIONS (4)
  - HEPATOTOXICITY [None]
  - MUSCULOSKELETAL CHEST PAIN [None]
  - NAUSEA [None]
  - VOMITING [None]
